FAERS Safety Report 11506851 (Version 2)
Quarter: 2015Q4

REPORT INFORMATION
  Report Type: Spontaneous
  Country: CO (occurrence: CO)
  Receive Date: 20150915
  Receipt Date: 20151028
  Transmission Date: 20160304
  Serious: Yes (Hospitalization, Other)
  Sender: FDA-Public Use
  Company Number: CO-BAYER-2015-419316

PATIENT
  Age: 27 Year
  Sex: Female

DRUGS (1)
  1. JAYDESS [Suspect]
     Active Substance: LEVONORGESTREL
     Indication: CONTRACEPTION
     Dosage: 14 MCG/24HR, CONT
     Route: 015
     Dates: start: 20150312

REACTIONS (5)
  - Abdominal pain [Recovering/Resolving]
  - Ectopic pregnancy with contraceptive device [Recovering/Resolving]
  - Haemorrhagic anaemia [Recovering/Resolving]
  - Internal haemorrhage [Recovering/Resolving]
  - Menstruation delayed [None]

NARRATIVE: CASE EVENT DATE: 2015
